FAERS Safety Report 13865040 (Version 1)
Quarter: 2017Q3

REPORT INFORMATION
  Report Type: Spontaneous
  Country: GB (occurrence: GB)
  Receive Date: 20170814
  Receipt Date: 20170814
  Transmission Date: 20171127
  Serious: Yes (Other)
  Sender: FDA-Public Use
  Company Number: GB-PFIZER INC-2017350418

PATIENT
  Age: 21 Year
  Sex: Female
  Weight: 52.61 kg

DRUGS (2)
  1. LOGYNON [Concomitant]
     Dosage: UNK
  2. GABAPENTIN. [Suspect]
     Active Substance: GABAPENTIN
     Indication: ULNAR NERVE PALSY
     Dosage: UNK
     Route: 048

REACTIONS (3)
  - Dizziness [Recovered/Resolved]
  - Fall [Unknown]
  - Gait inability [Unknown]
